FAERS Safety Report 18160480 (Version 1)
Quarter: 2020Q3

REPORT INFORMATION
  Report Type: Other
  Country: CA (occurrence: CA)
  Receive Date: 20200818
  Receipt Date: 20200818
  Transmission Date: 20201103
  Serious: Yes (Other)
  Sender: FDA-Public Use
  Company Number: CA-APOTEX-2020AP015718

PATIENT
  Age: 64 Year
  Sex: Male

DRUGS (1)
  1. SALBUTAMOL [Suspect]
     Active Substance: ALBUTEROL
     Indication: PRODUCT USED FOR UNKNOWN INDICATION
     Dosage: UNK
     Route: 065

REACTIONS (5)
  - Bronchitis [Unknown]
  - Blood count abnormal [Unknown]
  - Bronchitis bacterial [Unknown]
  - Eosinophilic bronchitis [Unknown]
  - Obstructive airways disorder [Unknown]
